FAERS Safety Report 6436856-0 (Version None)
Quarter: 2009Q4

REPORT INFORMATION
  Report Type: 
  Country: None (occurrence: None)
  Receive Date: 20091111
  Receipt Date: 20090918
  Transmission Date: 20100525
  Serious: No
  Sender: FDA-Public Use
  Company Number: US-ALLERGAN-0913077US

PATIENT
  Age: 90 Year
  Sex: Female

DRUGS (1)
  1. SANCTURA XR [Suspect]
     Indication: URINARY INCONTINENCE
     Dosage: 60 MG, QD
     Route: 048
     Dates: start: 20090911

REACTIONS (1)
  - ARTHRALGIA [None]
